FAERS Safety Report 8340927-1 (Version None)
Quarter: 2012Q2

REPORT INFORMATION
  Report Type: 
  Country: None (occurrence: None)
  Receive Date: 20120503
  Receipt Date: 20120425
  Transmission Date: 20120825
  Serious: Yes (Hospitalization)
  Sender: FDA-Public Use
  Company Number: GER/UKI/12/0024074

PATIENT
  Age: 65 Year
  Sex: Female

DRUGS (10)
  1. ASPIRIN [Concomitant]
  2. GLICLAZIDE (GLICLAZIDE) [Concomitant]
  3. RAMIPRIL [Suspect]
     Indication: DIABETES MELLITUS
     Dosage: 10 MG, 1 IN 1 D, ORAL
     Route: 048
  4. CALCIUM AND COLECALCIFEROL (CALCIUM) [Concomitant]
  5. GAVISCON ADVANCE (GAVISCON ADVANCE) [Concomitant]
  6. ATORVASTATIN [Concomitant]
  7. AMLODIPINE [Suspect]
     Indication: HYPERTENSION
     Dosage: 5 MG, 1 IN 1 D, ORAL
     Route: 048
  8. VENTOLIN [Concomitant]
  9. NUTRITIONAL SUPPLEMENT (GENERAL NUTRIENTS) [Concomitant]
  10. OMEPRAZOLE [Concomitant]

REACTIONS (3)
  - JOINT SWELLING [None]
  - FALL [None]
  - HYPOTENSION [None]
